FAERS Safety Report 13596809 (Version 1)
Quarter: 2017Q2

REPORT INFORMATION
  Report Type: Spontaneous
  Country: US (occurrence: US)
  Receive Date: 20170529
  Receipt Date: 20170529
  Transmission Date: 20170830
  Serious: Yes (Other)
  Sender: FDA-Public Use
  Company Number: None

PATIENT
  Age: 8 Year
  Sex: Female
  Weight: 36 kg

DRUGS (1)
  1. PREDNISONE, FOODS [Suspect]
     Active Substance: PREDNISONE
     Indication: BRONCHITIS
     Dosage: OTHER STRENGTH:ADDITIVE;QUANTITY:1 ADDITIVE;OTHER FREQUENCY:IN FOODS;OTHER ROUTE:MEDICINES AND FOOD?
     Dates: start: 20170301, end: 20170310

REACTIONS (2)
  - Blood pressure increased [None]
  - Documented hypersensitivity to administered product [None]

NARRATIVE: CASE EVENT DATE: 20170324
